FAERS Safety Report 5832391-9 (Version None)
Quarter: 2008Q3

REPORT INFORMATION
  Report Type: 
  Country: None (occurrence: None)
  Receive Date: 20080804
  Receipt Date: 20080724
  Transmission Date: 20090109
  Serious: Yes (Hospitalization)
  Sender: FDA-Public Use
  Company Number: JP-MERCK-0805USA05705

PATIENT
  Age: 71 Year
  Sex: Female

DRUGS (6)
  1. FOSAMAX [Suspect]
     Indication: OSTEOPOROSIS
     Route: 048
     Dates: start: 20071113, end: 20080430
  2. EPADEL S [Suspect]
     Indication: HYPERLIPIDAEMIA
     Route: 048
     Dates: start: 20070131, end: 20080423
  3. GASTROM [Suspect]
     Indication: GASTRITIS
     Route: 048
     Dates: start: 20080111, end: 20080423
  4. OPALMON [Suspect]
     Indication: SPINAL COLUMN STENOSIS
     Route: 048
     Dates: start: 19990901, end: 20080423
  5. LEVOTHYROXINE SODIUM [Suspect]
     Indication: HYPOTHYROIDISM
     Route: 048
     Dates: start: 20011221, end: 20080423
  6. SYAKUYAKU-KANZOTO [Suspect]
     Indication: MUSCLE SPASMS
     Route: 048
     Dates: start: 19990409, end: 20080423

REACTIONS (1)
  - HEPATIC FUNCTION ABNORMAL [None]
